FAERS Safety Report 23367323 (Version 1)
Quarter: 2024Q1

REPORT INFORMATION
  Report Type: Spontaneous
  Country: US (occurrence: US)
  Receive Date: 20240104
  Receipt Date: 20240104
  Transmission Date: 20240409
  Serious: No
  Sender: FDA-Public Use
  Company Number: US-MARINUS PHARMACEUTICALS, INC.-MAR2023000138

PATIENT

DRUGS (4)
  1. ZTALMY [Suspect]
     Active Substance: GANAXOLONE
     Indication: Seizure
     Dosage: UNK
     Route: 048
     Dates: start: 202301
  2. CLOBAZAM [Concomitant]
     Active Substance: CLOBAZAM
     Indication: Epilepsy
     Dosage: UNK
     Route: 065
  3. DEPAKOTE [Concomitant]
     Active Substance: DIVALPROEX SODIUM
     Indication: Epilepsy
     Dosage: UNK
     Route: 065
  4. FINTEPLA [Concomitant]
     Active Substance: FENFLURAMINE
     Indication: Epilepsy
     Dosage: UNK
     Route: 065

REACTIONS (5)
  - Salivary hypersecretion [Unknown]
  - Cognitive disorder [Unknown]
  - Impulsive behaviour [Unknown]
  - Anxiety [Unknown]
  - Amblyopia [Unknown]

NARRATIVE: CASE EVENT DATE: 20230101
